FAERS Safety Report 15531424 (Version 1)
Quarter: 2018Q4

REPORT INFORMATION
  Report Type: Report from Study
  Country: CA (occurrence: CA)
  Receive Date: 20181019
  Receipt Date: 20181019
  Transmission Date: 20190205
  Serious: No
  Sender: FDA-Public Use
  Company Number: CA-ROCHE-2200055

PATIENT
  Age: 47 Year
  Sex: Female

DRUGS (1)
  1. OCREVUS [Suspect]
     Active Substance: OCRELIZUMAB
     Indication: RELAPSING-REMITTING MULTIPLE SCLEROSIS
     Dosage: 4.00 X 300 MG DAY 1, 15 THEN Q6M.
     Route: 042
     Dates: start: 20180322

REACTIONS (2)
  - Feeling abnormal [Unknown]
  - Cystitis [Unknown]

NARRATIVE: CASE EVENT DATE: 201810
